FAERS Safety Report 26085454 (Version 2)
Quarter: 2025Q4

REPORT INFORMATION
  Report Type: Spontaneous
  Country: EU (occurrence: EU)
  Receive Date: 20251125
  Receipt Date: 20251201
  Transmission Date: 20260118
  Serious: Yes (Other)
  Sender: ALKEM
  Company Number: None

PATIENT
  Age: 29 Year
  Sex: Female
  Weight: 70.3 kg

DRUGS (15)
  1. IBUPROFEN [Suspect]
     Active Substance: IBUPROFEN
     Indication: Pain
     Dosage: 1 DOSAGE FORM, PRN ( FILM-COATED TABLET)
     Route: 048
     Dates: start: 20250804
  2. CLOZAPINE [Suspect]
     Active Substance: CLOZAPINE
     Indication: Product used for unknown indication
     Dosage: 2 DOSAGE FORM, QD (TABLET)
     Route: 048
  3. CLOZAPINE [Suspect]
     Active Substance: CLOZAPINE
     Dosage: 175 MILLIGRAM, QD
     Route: 048
  4. CLOZAPINE [Suspect]
     Active Substance: CLOZAPINE
     Dosage: UNK (REDUCED DOSE)
     Route: 065
  5. PROMETHAZINE [Suspect]
     Active Substance: PROMETHAZINE HYDROCHLORIDE
     Indication: Restlessness
     Dosage: 1 DOSAGE FORM, PRN (TABLET)
     Route: 048
     Dates: start: 20250608
  6. AMISULPRIDE [Suspect]
     Active Substance: AMISULPRIDE
     Indication: Product used for unknown indication
     Dosage: 1.5 DOSAGE FORM, QD (TABLET)
     Route: 048
  7. LACTULOSE [Suspect]
     Active Substance: LACTULOSE
     Indication: Constipation
     Dosage: 10 MILLILITER, TID (AL SYRUP)
     Route: 048
  8. LACTULOSE [Suspect]
     Active Substance: LACTULOSE
     Dosage: 10 MILLILITER (500 ML SYRUP)
     Route: 048
     Dates: start: 20250923
  9. BIPERIDEN [Suspect]
     Active Substance: BIPERIDEN
     Indication: Extrapyramidal disorder
     Dosage: 1 DOSAGE FORM, PRN (2 MG TABLET)
     Route: 048
     Dates: start: 20250625
  10. BIPERIDEN [Suspect]
     Active Substance: BIPERIDEN
     Dosage: 1 DOSAGE FORM, PRN (4 MG PROLONGED-RELEASE TABLET)
     Route: 048
  11. DIAZEPAM [Suspect]
     Active Substance: DIAZEPAM
     Indication: Restlessness
     Dosage: 5 MILLIGRAM, PRN
     Route: 048
     Dates: start: 20250610
  12. HALOPERIDOL [Suspect]
     Active Substance: HALOPERIDOL
     Indication: Restlessness
     Dosage: 5 MILLIGRAM, PRN
     Route: 048
     Dates: start: 20250609
  13. LORAZEPAM [Suspect]
     Active Substance: LORAZEPAM
     Indication: Restlessness
     Dosage: 1 DOSAGE FORM, PRN
     Route: 048
     Dates: start: 20250816
  14. POLYETHYLENE GLYCOL [Suspect]
     Active Substance: POLYETHYLENE GLYCOL
     Indication: Product used for unknown indication
     Dosage: 1 DOSAGE FORM, TID
     Route: 048
  15. SERTRALINE HYDROCHLORIDE [Suspect]
     Active Substance: SERTRALINE HYDROCHLORIDE
     Indication: Product used for unknown indication
     Dosage: 1 DOSAGE FORM, QD
     Route: 048

REACTIONS (39)
  - Exophthalmos [Unknown]
  - Seizure [Unknown]
  - Syncope [Unknown]
  - Circulatory collapse [Unknown]
  - Angina pectoris [Unknown]
  - Epilepsy [Unknown]
  - Loss of consciousness [Unknown]
  - Fear of death [Unknown]
  - Foaming at mouth [Unknown]
  - Human bite [Unknown]
  - Amnesia [Unknown]
  - Head discomfort [Unknown]
  - Screaming [Unknown]
  - Speech disorder [Unknown]
  - Anxiety [Unknown]
  - Pelvic pain [Unknown]
  - Amenorrhoea [Unknown]
  - Uterine pain [Unknown]
  - Muscle twitching [Unknown]
  - Motor dysfunction [Unknown]
  - Memory impairment [Unknown]
  - Posture abnormal [Unknown]
  - Stress [Unknown]
  - Tremor [Unknown]
  - Dysphemia [Unknown]
  - Abdominal pain [Unknown]
  - Tongue biting [Unknown]
  - Hyperacusis [Unknown]
  - Alopecia [Unknown]
  - Weight increased [Unknown]
  - Confusional state [Unknown]
  - Pyrexia [Unknown]
  - Constipation [Unknown]
  - Dizziness [Unknown]
  - Nausea [Unknown]
  - Headache [Unknown]
  - Labelled drug-drug interaction issue [Unknown]
  - Circumstance or information capable of leading to medication error [Unknown]
  - Contraindicated product administered [Unknown]
